FAERS Safety Report 15349059 (Version 2)
Quarter: 2018Q3

REPORT INFORMATION
  Report Type: Spontaneous
  Country: CN (occurrence: CN)
  Receive Date: 20180904
  Receipt Date: 20180925
  Transmission Date: 20181010
  Serious: Yes (Hospitalization, Other)
  Sender: FDA-Public Use
  Company Number: CN-PFIZER INC-2018348236

PATIENT
  Age: 7 Year
  Sex: Male

DRUGS (8)
  1. DEXAMETHASONE. [Suspect]
     Active Substance: DEXAMETHASONE
     Dosage: 5 MG, CYCLIC (INJECTION)
     Route: 037
     Dates: start: 20150218
  2. CYTARABINE. [Suspect]
     Active Substance: CYTARABINE
     Indication: T-CELL TYPE ACUTE LEUKAEMIA
     Dosage: UNK, CYCLIC (2 G/M2)
     Dates: start: 20150218
  3. VINCRISTINE [Suspect]
     Active Substance: VINCRISTINE
     Indication: T-CELL TYPE ACUTE LEUKAEMIA
     Dosage: 1.5 MG/M2, CYCLIC
     Dates: start: 20150218
  4. METHOTREXATE SODIUM. [Suspect]
     Active Substance: METHOTREXATE SODIUM
     Indication: T-CELL TYPE ACUTE LEUKAEMIA
     Dosage: UNK, CYCLIC (1 G/M2)
     Dates: start: 20150218
  5. AZATHIOPRINE. [Suspect]
     Active Substance: AZATHIOPRINE
     Indication: T-CELL TYPE ACUTE LEUKAEMIA
     Dosage: 100 MG/M2, CYCLIC
     Dates: start: 20150218
  6. DEXAMETHASONE. [Suspect]
     Active Substance: DEXAMETHASONE
     Indication: T-CELL TYPE ACUTE LEUKAEMIA
     Dosage: 20 MG/M2, CYCLIC (CARRIED OUT REGULARLY)
     Dates: start: 20150218
  7. CYTARABINE. [Suspect]
     Active Substance: CYTARABINE
     Dosage: 35 MG, UNK (INJECTION)
     Route: 037
  8. METHOTREXATE SODIUM. [Suspect]
     Active Substance: METHOTREXATE SODIUM
     Dosage: 12.5 MG, UNK (INJECTION)
     Route: 037

REACTIONS (3)
  - Bone marrow failure [Unknown]
  - Mucormycosis [Recovered/Resolved]
  - Pleural effusion [Unknown]
